FAERS Safety Report 7733016-8 (Version None)
Quarter: 2011Q3

REPORT INFORMATION
  Report Type: 
  Country: None (occurrence: None)
  Receive Date: 20110907
  Receipt Date: 20110901
  Transmission Date: 20111222
  Serious: No
  Sender: FDA-Public Use
  Company Number: US-PFIZER INC-2010075427

PATIENT
  Age: 70 Year
  Sex: Female

DRUGS (14)
  1. LYRICA [Suspect]
     Indication: FIBROMYALGIA
     Dosage: 50 MG, 1X/DAY
     Route: 048
     Dates: start: 20100609, end: 20100609
  2. LYRICA [Suspect]
     Dosage: 50 MG, 2X/DAY
     Route: 048
     Dates: start: 20100610, end: 20100613
  3. OMEPRAZOLE [Concomitant]
     Indication: GASTROOESOPHAGEAL REFLUX DISEASE
     Dosage: 20 MG
  4. VITAMIN D [Concomitant]
     Dosage: UNK
  5. ZOLPIDEM [Concomitant]
     Indication: SLEEP DISORDER
     Dosage: 10 MG DAILY
  6. LYRICA [Suspect]
     Dosage: 50 MG, 3X/DAY
     Route: 048
     Dates: start: 20100614
  7. ALBUTEROL SULFATE AUTOHALER [Concomitant]
     Indication: ASTHMA
     Dosage: UNK
  8. OMNIPRED [Concomitant]
     Indication: TRANSPLANT
     Dosage: TWO DROPS ONCE DAILY
  9. SINGULAIR [Concomitant]
     Indication: ASTHMA
     Dosage: 20 MG DAILY
  10. LEVOXYL [Concomitant]
     Indication: THYROID DISORDER
     Dosage: 150 MCG DAILY
  11. LIPITOR [Concomitant]
     Indication: BLOOD CHOLESTEROL INCREASED
     Dosage: 20 MG DAILY
  12. METFORMIN [Concomitant]
     Indication: GLUCOSE TOLERANCE IMPAIRED
     Dosage: 500 MG, 2X/DAY
  13. CALCIUM [Concomitant]
     Dosage: UNK
  14. BENICAR [Concomitant]
     Indication: HYPERTENSION
     Dosage: 20 MG DAILY

REACTIONS (4)
  - BLISTER [None]
  - OROPHARYNGEAL PAIN [None]
  - RASH [None]
  - PAIN IN EXTREMITY [None]
